FAERS Safety Report 12213587 (Version 1)
Quarter: 2016Q1

REPORT INFORMATION
  Report Type: Spontaneous
  Country: PR (occurrence: PR)
  Receive Date: 20160328
  Receipt Date: 20160328
  Transmission Date: 20160526
  Serious: No
  Sender: FDA-Public Use
  Company Number: PR-PFIZER INC-2016153452

PATIENT
  Age: 59 Year
  Sex: Female
  Weight: 109.75 kg

DRUGS (1)
  1. IBRANCE [Suspect]
     Active Substance: PALBOCICLIB
     Indication: BREAST CANCER FEMALE
     Dosage: 75 MG, DAILY
     Route: 048
     Dates: start: 20150824

REACTIONS (3)
  - Diarrhoea [Unknown]
  - Rash [Unknown]
  - Hepatic enzyme increased [Unknown]
